FAERS Safety Report 25101832 (Version 1)
Quarter: 2025Q1

REPORT INFORMATION
  Report Type: Spontaneous
  Country: US (occurrence: None)
  Receive Date: 20250320
  Receipt Date: 20250320
  Transmission Date: 20250409
  Serious: Yes (Death)
  Sender: FDA-CTU
  Company Number: None

PATIENT
  Age: 64 Year
  Sex: Male

DRUGS (1)
  1. BARACLUDE [Suspect]
     Active Substance: ENTECAVIR
     Indication: Hepatitis
     Dosage: FREQUENCY : DAILY;?
     Route: 048
     Dates: start: 20221007, end: 20250108

REACTIONS (1)
  - Death [None]

NARRATIVE: CASE EVENT DATE: 20250108
